FAERS Safety Report 7884068-6 (Version None)
Quarter: 2011Q4

REPORT INFORMATION
  Report Type: 
  Country: None (occurrence: None)
  Receive Date: 20111102
  Receipt Date: 20111027
  Transmission Date: 20120403
  Serious: Yes (Other)
  Sender: FDA-Public Use
  Company Number: US-ROXANE LABORATORIES, INC.-2011-DE-01870GD

PATIENT
  Age: 9 Year
  Sex: Male

DRUGS (1)
  1. PREDNISONE [Suspect]
     Indication: ASTHMA
     Route: 048

REACTIONS (5)
  - RETCHING [None]
  - URTICARIA [None]
  - FLUSHING [None]
  - ANAPHYLACTIC REACTION [None]
  - THROAT TIGHTNESS [None]
